FAERS Safety Report 9182537 (Version 1)
Quarter: 2013Q1

REPORT INFORMATION
  Report Type: Spontaneous
  Country: US (occurrence: US)
  Receive Date: 20130322
  Receipt Date: 20130322
  Transmission Date: 20140127
  Serious: Yes (Hospitalization)
  Sender: FDA-Public Use
  Company Number: US-BRISTOL-MYERS SQUIBB COMPANY-16808149

PATIENT
  Age: 38 Year
  Sex: Female

DRUGS (13)
  1. ERBITUX [Suspect]
     Indication: COLON CANCER METASTATIC
     Dosage: LAST DOSE:5SEP12
     Route: 042
     Dates: start: 20120718
  2. AVASTIN [Concomitant]
  3. 5-FLUOROURACIL [Concomitant]
  4. LEUCOVORIN [Concomitant]
  5. RISPERDAL [Concomitant]
  6. ZOFRAN [Concomitant]
  7. IPRATROPIUM [Concomitant]
     Dosage: 1 DF: 0.6 UNITS NOS
  8. OXYCODONE [Concomitant]
  9. OXYCODONE [Concomitant]
  10. LISINOPRIL [Concomitant]
  11. IRINOTECAN [Concomitant]
  12. PEPCID [Concomitant]
  13. CAMPTOSAR [Concomitant]

REACTIONS (9)
  - Back pain [Not Recovered/Not Resolved]
  - Fatigue [Not Recovered/Not Resolved]
  - Dehydration [Not Recovered/Not Resolved]
  - Dyspnoea [Not Recovered/Not Resolved]
  - Constipation [Not Recovered/Not Resolved]
  - Oropharyngeal pain [Unknown]
  - Somnolence [Not Recovered/Not Resolved]
  - Dyspepsia [Not Recovered/Not Resolved]
  - Migraine [Not Recovered/Not Resolved]
